FAERS Safety Report 6121578-6 (Version None)
Quarter: 2009Q1

REPORT INFORMATION
  Report Type: 
  Country: None (occurrence: None)
  Receive Date: 20090313
  Receipt Date: 20090302
  Transmission Date: 20090719
  Serious: Yes (Other)
  Sender: FDA-Public Use
  Company Number: PAR-02867-2009

PATIENT
  Sex: Male

DRUGS (3)
  1. ALPRAZOLAM [Suspect]
     Indication: INSOMNIA
     Dosage: (0.5 MG 1X ORAL)
     Route: 048
     Dates: start: 20090227, end: 20090227
  2. PRINIVIL [Concomitant]
  3. ALLEGRA [Concomitant]

REACTIONS (7)
  - ACCOMMODATION DISORDER [None]
  - AGITATION [None]
  - BLINDNESS TRANSIENT [None]
  - FEELING ABNORMAL [None]
  - PRODUCT QUALITY ISSUE [None]
  - SINUS HEADACHE [None]
  - VISION BLURRED [None]
